FAERS Safety Report 26101640 (Version 2)
Quarter: 2025Q4

REPORT INFORMATION
  Report Type: Spontaneous
  Country: EU (occurrence: EU)
  Receive Date: 20251128
  Receipt Date: 20251204
  Transmission Date: 20260118
  Serious: Yes (Hospitalization, Other)
  Sender: MYLAN
  Company Number: EU-AMGEN-POLSP2025185305

PATIENT
  Age: 70 Year
  Sex: Male

DRUGS (28)
  1. OXALIPLATIN [Suspect]
     Active Substance: OXALIPLATIN
     Indication: Colon cancer
     Dosage: DOSAGE1: UNIT=NOT AVAILABLE
  2. OXALIPLATIN [Suspect]
     Active Substance: OXALIPLATIN
     Dosage: DOSAGE1: UNIT=NOT AVAILABLE
     Route: 065
  3. OXALIPLATIN [Suspect]
     Active Substance: OXALIPLATIN
     Dosage: DOSAGE1: UNIT=NOT AVAILABLE
     Route: 065
  4. OXALIPLATIN [Suspect]
     Active Substance: OXALIPLATIN
     Dosage: DOSAGE1: UNIT=NOT AVAILABLE
  5. PANITUMUMAB [Suspect]
     Active Substance: PANITUMUMAB
     Indication: Colon cancer
     Dosage: DOSAGE1: UNIT=NOT AVAILABLE
  6. PANITUMUMAB [Suspect]
     Active Substance: PANITUMUMAB
     Dosage: DOSAGE1: UNIT=NOT AVAILABLE
  7. PANITUMUMAB [Suspect]
     Active Substance: PANITUMUMAB
     Dosage: DOSAGE1: UNIT=NOT AVAILABLE
     Route: 065
  8. PANITUMUMAB [Suspect]
     Active Substance: PANITUMUMAB
     Dosage: DOSAGE1: UNIT=NOT AVAILABLE
     Route: 065
  9. PANITUMUMAB [Suspect]
     Active Substance: PANITUMUMAB
     Dosage: UNK (DOSE REDUCTIONS UP TO 60%)
  10. PANITUMUMAB [Suspect]
     Active Substance: PANITUMUMAB
     Dosage: UNK (DOSE REDUCTIONS UP TO 60%)
  11. PANITUMUMAB [Suspect]
     Active Substance: PANITUMUMAB
     Dosage: UNK (DOSE REDUCTIONS UP TO 60%)
     Route: 065
  12. PANITUMUMAB [Suspect]
     Active Substance: PANITUMUMAB
     Dosage: UNK (DOSE REDUCTIONS UP TO 60%)
     Route: 065
  13. NIVOLUMAB [Suspect]
     Active Substance: NIVOLUMAB
     Indication: Product used for unknown indication
     Dosage: DOSAGE1: UNIT=NOT AVAILABLE
  14. NIVOLUMAB [Suspect]
     Active Substance: NIVOLUMAB
     Dosage: DOSAGE1: UNIT=NOT AVAILABLE
     Route: 065
  15. NIVOLUMAB [Suspect]
     Active Substance: NIVOLUMAB
     Dosage: DOSAGE1: UNIT=NOT AVAILABLE
     Route: 065
  16. NIVOLUMAB [Suspect]
     Active Substance: NIVOLUMAB
     Dosage: DOSAGE1: UNIT=NOT AVAILABLE
  17. IRINOTECAN [Concomitant]
     Active Substance: IRINOTECAN
     Indication: Colon cancer
     Dosage: UNK
  18. IRINOTECAN [Concomitant]
     Active Substance: IRINOTECAN
     Dosage: UNK
     Route: 065
  19. IRINOTECAN [Concomitant]
     Active Substance: IRINOTECAN
     Dosage: UNK
     Route: 065
  20. IRINOTECAN [Concomitant]
     Active Substance: IRINOTECAN
     Dosage: UNK
  21. LEUCOVORIN [Concomitant]
     Active Substance: LEUCOVORIN\LEUCOVORIN CALCIUM
     Indication: Colon cancer
     Dosage: UNK
  22. LEUCOVORIN [Concomitant]
     Active Substance: LEUCOVORIN\LEUCOVORIN CALCIUM
     Dosage: UNK
     Route: 065
  23. LEUCOVORIN [Concomitant]
     Active Substance: LEUCOVORIN\LEUCOVORIN CALCIUM
     Dosage: UNK
     Route: 065
  24. LEUCOVORIN [Concomitant]
     Active Substance: LEUCOVORIN\LEUCOVORIN CALCIUM
     Dosage: UNK
  25. FLUOROURACIL [Concomitant]
     Active Substance: FLUOROURACIL
     Indication: Colon cancer
     Dosage: UNK
  26. FLUOROURACIL [Concomitant]
     Active Substance: FLUOROURACIL
     Dosage: UNK
     Route: 065
  27. FLUOROURACIL [Concomitant]
     Active Substance: FLUOROURACIL
     Dosage: UNK
     Route: 065
  28. FLUOROURACIL [Concomitant]
     Active Substance: FLUOROURACIL
     Dosage: UNK

REACTIONS (4)
  - Skin lesion [Unknown]
  - Dementia [Unknown]
  - Rash pustular [Recovering/Resolving]
  - Neuropathy peripheral [Unknown]
